FAERS Safety Report 20559465 (Version 2)
Quarter: 2022Q1

REPORT INFORMATION
  Report Type: Spontaneous
  Country: AU (occurrence: AU)
  Receive Date: 20220307
  Receipt Date: 20220309
  Transmission Date: 20220423
  Serious: Yes (Other)
  Sender: FDA-Public Use
  Company Number: AU-NOVARTISPH-NVSC2022AU052031

PATIENT
  Age: 60 Year
  Sex: Female

DRUGS (2)
  1. KYMRIAH [Suspect]
     Active Substance: TISAGENLECLEUCEL
     Indication: B-cell lymphoma
     Dosage: UNK
     Route: 042
     Dates: start: 20211005
  2. KYMRIAH [Suspect]
     Active Substance: TISAGENLECLEUCEL
     Indication: Diffuse large B-cell lymphoma
     Dosage: UNK
     Route: 065
     Dates: start: 20211005

REACTIONS (5)
  - Pneumonitis [Unknown]
  - Cytokine release syndrome [Unknown]
  - Pyrexia [Unknown]
  - Diarrhoea [Unknown]
  - COVID-19 [Unknown]

NARRATIVE: CASE EVENT DATE: 20220104
